FAERS Safety Report 13110687 (Version 1)
Quarter: 2017Q1

REPORT INFORMATION
  Report Type: Report from Study
  Country: TW (occurrence: TW)
  Receive Date: 20170112
  Receipt Date: 20170112
  Transmission Date: 20170428
  Serious: Yes (Hospitalization, Other)
  Sender: FDA-Public Use
  Company Number: PHHY2016TW160471

PATIENT
  Age: 66 Year
  Sex: Male
  Weight: 75 kg

DRUGS (7)
  1. ETHAMBUTOL [Concomitant]
     Active Substance: ETHAMBUTOL HYDROCHLORIDE
     Indication: PRODUCT USED FOR UNKNOWN INDICATION
     Dosage: 400 MG, UNK
  2. CELECOXIB. [Concomitant]
     Active Substance: CELECOXIB
     Indication: PRODUCT USED FOR UNKNOWN INDICATION
     Dosage: 1 DF, UNK
     Route: 065
  3. ULTRACET [Concomitant]
     Active Substance: ACETAMINOPHEN\TRAMADOL HYDROCHLORIDE
     Indication: PRODUCT USED FOR UNKNOWN INDICATION
     Dosage: 0.50 UNK, Q6H
     Route: 065
  4. TASIGNA [Suspect]
     Active Substance: NILOTINIB
     Indication: CHRONIC MYELOID LEUKAEMIA
     Dosage: 600 MG, UNK
     Route: 048
     Dates: start: 20150519, end: 20160628
  5. ESOMEPRAZOLE [Concomitant]
     Active Substance: ESOMEPRAZOLE
     Indication: PRODUCT USED FOR UNKNOWN INDICATION
     Dosage: 1 DF, UNK
     Route: 065
  6. DASATINIB [Concomitant]
     Active Substance: DASATINIB
     Indication: PRODUCT USED FOR UNKNOWN INDICATION
     Dosage: 2 UNK, UNK
     Route: 065
  7. SENNOSIDE [Concomitant]
     Active Substance: SENNOSIDES
     Indication: PRODUCT USED FOR UNKNOWN INDICATION
     Dosage: 20 MG, UNK
     Route: 065

REACTIONS (25)
  - Decreased appetite [Unknown]
  - Bone deformity [Unknown]
  - Mycobacterium avium complex infection [Recovered/Resolved]
  - Pallor [Unknown]
  - Lymphocyte count increased [Unknown]
  - Intervertebral discitis [Unknown]
  - Subcutaneous abscess [Unknown]
  - Pain [Unknown]
  - Pyrexia [Recovered/Resolved]
  - Scar [Unknown]
  - Basophil count increased [Unknown]
  - Pleural effusion [Unknown]
  - Back pain [Recovered/Resolved]
  - Osteomyelitis [Unknown]
  - Weight decreased [Unknown]
  - Monocyte count increased [Unknown]
  - Swelling [Unknown]
  - Bone tuberculosis [Recovered/Resolved]
  - Pathological fracture [Unknown]
  - Back pain [Recovering/Resolving]
  - Mass [Recovering/Resolving]
  - Haemoglobin decreased [Unknown]
  - Back disorder [Unknown]
  - Abscess [Unknown]
  - Eosinophil count increased [Unknown]

NARRATIVE: CASE EVENT DATE: 20160814
